FAERS Safety Report 23281989 (Version 1)
Quarter: 2023Q4

REPORT INFORMATION
  Report Type: Spontaneous
  Country: GB (occurrence: GB)
  Receive Date: 20231211
  Receipt Date: 20231211
  Transmission Date: 20240109
  Serious: Yes (Other)
  Sender: FDA-Public Use
  Company Number: GB-MYLANLABS-2023M1129752

PATIENT
  Age: 35 Year
  Sex: Male

DRUGS (1)
  1. CLOZARIL [Suspect]
     Active Substance: CLOZAPINE
     Indication: Schizophrenia
     Dosage: UNK
     Route: 048
     Dates: start: 20210902

REACTIONS (5)
  - Thrombocytopenia [Unknown]
  - Anaemia [Unknown]
  - Eosinophil count decreased [Unknown]
  - White blood cell count decreased [Unknown]
  - Infection [Unknown]

NARRATIVE: CASE EVENT DATE: 20231204
